FAERS Safety Report 4424741-5 (Version None)
Quarter: 2004Q3

REPORT INFORMATION
  Report Type: 
  Country: None (occurrence: None)
  Receive Date: 20040805
  Receipt Date: 20040726
  Transmission Date: 20050211
  Serious: Yes (Death, Hospitalization)
  Sender: FDA-Public Use
  Company Number: STA-AE-04-MTX-331

PATIENT
  Age: 83 Year
  Sex: Female

DRUGS (10)
  1. RHEUMATREX [Suspect]
     Indication: RHEUMATOID ARTHRITIS
     Dosage: 2 MG 1X PER 1 DAY, ORAL
     Route: 048
     Dates: start: 20040604, end: 20040605
  2. CEFPIRAMIDE SODIUM [Suspect]
     Indication: INFECTION
     Dosage: 0.5 MG 1X PER 1 DAY, INTRAVENOUS
     Route: 042
     Dates: start: 20040609, end: 20040611
  3. SOLETON (ZALTOPROFEN) [Concomitant]
  4. PREDNISOLONE [Concomitant]
  5. AZULFIDINE [Concomitant]
  6. LEVOTHYROXINE SODIUM [Concomitant]
  7. AMLODIPINE BESYLATE [Concomitant]
  8. BUP-4 (PROPIVERINE HYDROCHLORIDE) [Concomitant]
  9. SILECE (FLUNITRAZEPAM) [Concomitant]
  10. PIPERACILLIN SODIUM [Concomitant]

REACTIONS (11)
  - ABDOMINAL DISTENSION [None]
  - ALANINE AMINOTRANSFERASE INCREASED [None]
  - ANOREXIA [None]
  - ARTHRALGIA [None]
  - ASPARTATE AMINOTRANSFERASE INCREASED [None]
  - DEPRESSED LEVEL OF CONSCIOUSNESS [None]
  - DEPRESSION [None]
  - HYPOTENSION [None]
  - INFECTION [None]
  - PANCYTOPENIA [None]
  - VOMITING [None]
